FAERS Safety Report 11173992 (Version 2)
Quarter: 2015Q2

REPORT INFORMATION
  Report Type: Spontaneous
  Country: PT (occurrence: PT)
  Receive Date: 20150609
  Receipt Date: 20150630
  Transmission Date: 20150821
  Serious: Yes (Death, Other)
  Sender: FDA-Public Use
  Company Number: PT-TEVA-567884ISR

PATIENT
  Age: 42 Year
  Sex: Male

DRUGS (9)
  1. MEROPENEM. [Suspect]
     Active Substance: MEROPENEM
     Indication: NOCARDIOSIS
     Route: 065
  2. CEFTRIAXONE. [Concomitant]
     Active Substance: CEFTRIAXONE
     Indication: TRACHEOBRONCHITIS
  3. LINEZOLIDE [Concomitant]
     Active Substance: LINEZOLID
     Indication: NOCARDIOSIS
     Route: 065
  4. AZITROMICINA [Concomitant]
     Active Substance: AZITHROMYCIN DIHYDRATE
     Indication: TRACHEOBRONCHITIS
     Route: 065
  5. AMICACINA [Concomitant]
     Indication: NOCARDIOSIS
     Route: 065
  6. AMOXICILINA + AC. CLAVULANICO [Concomitant]
     Indication: NOCARDIOSIS
     Route: 065
  7. AMICACINA [Concomitant]
     Indication: NOCARDIOSIS
  8. FLUCONAZOL [Concomitant]
     Active Substance: FLUCONAZOLE
     Indication: NOCARDIOSIS
     Route: 065
  9. COTRIMOXAZOL [Suspect]
     Active Substance: SULFAMETHOXAZOLE\TRIMETHOPRIM
     Indication: NOCARDIOSIS

REACTIONS (2)
  - Nocardiosis [Fatal]
  - Drug ineffective [Unknown]
